FAERS Safety Report 22822688 (Version 3)
Quarter: 2023Q4

REPORT INFORMATION
  Report Type: Report from Study
  Country: US (occurrence: US)
  Receive Date: 20230815
  Receipt Date: 20231117
  Transmission Date: 20240109
  Serious: No
  Sender: FDA-Public Use
  Company Number: US-SAREPTA THERAPEUTICS INC.-SRP2023-003561

PATIENT
  Age: 5 Year
  Sex: Male
  Weight: 30.6 kg

DRUGS (9)
  1. INVESTIGATIONAL PRODUCT [Suspect]
     Active Substance: INVESTIGATIONAL PRODUCT
     Indication: Duchenne muscular dystrophy
     Dosage: 230 MILLILITER, SINGLE
     Route: 042
     Dates: start: 20230516, end: 20230516
  2. PLACEBO [Suspect]
     Active Substance: UNSPECIFIED INGREDIENT
     Indication: Duchenne muscular dystrophy
     Dosage: 230 MILLILITER, SINGLE
     Route: 042
     Dates: start: 20230516, end: 20230516
  3. DELANDISTROGENE MOXEPARVOVEC [Suspect]
     Active Substance: DELANDISTROGENE MOXEPARVOVEC
     Indication: Duchenne muscular dystrophy
     Dosage: 230 MILLILITER, SINGLE
     Route: 042
     Dates: start: 20230516, end: 20230516
  4. PREDNISONE [Concomitant]
     Active Substance: PREDNISONE
     Indication: Steroid therapy
     Dosage: 30 MILLIGRAM, QD
     Route: 048
     Dates: start: 20230515
  5. PREDNISONE [Concomitant]
     Active Substance: PREDNISONE
     Indication: Duchenne muscular dystrophy
  6. DEFLAZACORT [Concomitant]
     Active Substance: DEFLAZACORT
     Indication: Duchenne muscular dystrophy
     Dosage: 22.75 MILLIGRAM, QD
     Route: 048
     Dates: start: 202110
  7. VITAMIN D NOS [Concomitant]
     Active Substance: VITAMIN D NOS
     Indication: Supplementation therapy
     Dosage: 400 INTERNATIONAL UNIT
     Route: 048
     Dates: start: 202112
  8. VITAMINS NOS [Concomitant]
     Active Substance: VITAMINS
     Indication: Supplementation therapy
     Dosage: 1 DOSAGE FORM, QD
     Route: 048
     Dates: start: 202112
  9. IRON [Concomitant]
     Active Substance: IRON
     Indication: Supplementation therapy
     Dosage: 2.5 MILLILITER, QD
     Route: 048
     Dates: start: 202203

REACTIONS (2)
  - Glutamate dehydrogenase increased [Recovered/Resolved]
  - Gamma-glutamyltransferase increased [Recovered/Resolved]

NARRATIVE: CASE EVENT DATE: 20230629
